FAERS Safety Report 5991268-9 (Version None)
Quarter: 2008Q4

REPORT INFORMATION
  Report Type: 
  Country: None (occurrence: None)
  Receive Date: 20081202
  Receipt Date: 20080806
  Transmission Date: 20090506
  Serious: Yes (Other)
  Sender: FDA-Public Use
  Company Number: 8035984

PATIENT
  Age: 3 Year
  Sex: Female

DRUGS (2)
  1. KEPPRA [Suspect]
     Dosage: 4000 MG IV
     Route: 042
  2. KEPPRA [Suspect]
     Dosage: 4000 MG

REACTIONS (1)
  - AGGRESSION [None]
